FAERS Safety Report 10648499 (Version 2)
Quarter: 2015Q2

REPORT INFORMATION
  Report Type: Report from Study
  Country: JP (occurrence: JP)
  Receive Date: 20141212
  Receipt Date: 20150428
  Transmission Date: 20150821
  Serious: Yes (Other)
  Sender: FDA-Public Use
  Company Number: JP-SHIONOGI, INC-2014001225

PATIENT
  Age: 13 Year
  Sex: Female
  Weight: 68 kg

DRUGS (2)
  1. FINIBAX [Suspect]
     Active Substance: DORIPENEM MONOHYDRATE
     Indication: PERITONITIS
     Dosage: 0.5 G, BID
     Route: 041
     Dates: start: 20140722, end: 20140725
  2. CEFMETAZOLE NA [Concomitant]
     Indication: PERITONITIS
     Dosage: 1 G, TID
     Route: 065
     Dates: start: 20140716, end: 20140722

REACTIONS (1)
  - Blood creatine phosphokinase increased [Recovered/Resolved]

NARRATIVE: CASE EVENT DATE: 20140725
